FAERS Safety Report 11156733 (Version 2)
Quarter: 2015Q2

REPORT INFORMATION
  Report Type: Spontaneous
  Country: US (occurrence: US)
  Receive Date: 20150602
  Receipt Date: 20150626
  Transmission Date: 20150821
  Serious: Yes (Hospitalization, Other)
  Sender: FDA-Public Use
  Company Number: US-GLAXOSMITHKLINE-US2015074000

PATIENT
  Age: 81 Year
  Sex: Male

DRUGS (5)
  1. PROAIR HFA [Concomitant]
     Active Substance: ALBUTEROL SULFATE
  2. CARTIA XT [Concomitant]
     Active Substance: DILTIAZEM HYDROCHLORIDE
  3. ADVAIR DISKUS [Suspect]
     Active Substance: FLUTICASONE PROPIONATE\SALMETEROL XINAFOATE
     Indication: CHRONIC OBSTRUCTIVE PULMONARY DISEASE
     Dosage: 1 PUFF(S), BID
     Route: 055
  4. ELIQUIS [Concomitant]
     Active Substance: APIXABAN
  5. IPRATROPIUM BROMIDE HYDRATE [Concomitant]

REACTIONS (8)
  - Vocal cordectomy [Not Recovered/Not Resolved]
  - Laryngeal cancer [Unknown]
  - Vocal cord neoplasm [Not Recovered/Not Resolved]
  - Pneumonia aspiration [Not Recovered/Not Resolved]
  - Lower limb fracture [Unknown]
  - Secretion discharge [Unknown]
  - Herpes zoster [Not Recovered/Not Resolved]
  - Off label use [Not Recovered/Not Resolved]

NARRATIVE: CASE EVENT DATE: 20110618
